FAERS Safety Report 6061705-2 (Version None)
Quarter: 2009Q1

REPORT INFORMATION
  Report Type: 
  Country: None (occurrence: None)
  Receive Date: 20090202
  Receipt Date: 20090121
  Transmission Date: 20090719
  Serious: Yes (Life-Threatening)
  Sender: FDA-Public Use
  Company Number: JP-SANOFI-SYNTHELABO-A01200814025

PATIENT
  Sex: Male
  Weight: 37 kg

DRUGS (6)
  1. THEO-DUR [Concomitant]
     Indication: METASTASES TO LUNG
     Route: 048
     Dates: start: 20051003, end: 20060609
  2. MUCODYNE [Concomitant]
     Indication: METASTASES TO LUNG
     Route: 048
     Dates: start: 20051003, end: 20060609
  3. FLUOROURACIL [Suspect]
     Dosage: 375MG/BODY (297.6MG/M2) IN BOLUS THEN 625MG/BODY (496MG/M2) AS CONTINUOUS INFUSION
     Route: 040
     Dates: start: 20051213, end: 20051213
  4. FLUOROURACIL [Suspect]
     Route: 041
     Dates: start: 20051213, end: 20051214
  5. ISOVORIN [Suspect]
     Route: 041
     Dates: start: 20051213, end: 20051214
  6. ELPLAT [Suspect]
     Indication: RECTAL CANCER
     Route: 041
     Dates: start: 20051213, end: 20051213

REACTIONS (3)
  - PNEUMOTHORAX [None]
  - RECTAL CANCER RECURRENT [None]
  - RESPIRATORY FAILURE [None]
